FAERS Safety Report 10841536 (Version 2)
Quarter: 2015Q1

REPORT INFORMATION
  Report Type: Spontaneous
  Country: FR (occurrence: FR)
  Receive Date: 20150220
  Receipt Date: 20150225
  Transmission Date: 20150721
  Serious: Yes (Other)
  Sender: FDA-Public Use
  Company Number: FR-ROCHE-1541094

PATIENT
  Age: 61 Year
  Sex: Male

DRUGS (4)
  1. PERFALGAN [Concomitant]
     Active Substance: ACETAMINOPHEN
     Route: 042
  2. MABTHERA [Suspect]
     Active Substance: RITUXIMAB
     Indication: RHEUMATOID ARTHRITIS
     Dosage: 2 INFUSIONS, 15 DAYS APART
     Route: 042
     Dates: start: 201107
  3. ZOPHREN [Concomitant]
     Active Substance: ONDANSETRON
     Route: 042
  4. POLARAMINE [Concomitant]
     Active Substance: DEXCHLORPHENIRAMINE MALEATE
     Route: 042

REACTIONS (3)
  - Odynophagia [Recovered/Resolved]
  - Oropharyngeal discomfort [Recovered/Resolved]
  - Dysphagia [Recovered/Resolved]

NARRATIVE: CASE EVENT DATE: 201107
